FAERS Safety Report 5493968-6 (Version None)
Quarter: 2007Q4

REPORT INFORMATION
  Report Type: 
  Country: None (occurrence: None)
  Receive Date: 20071019
  Receipt Date: 20071016
  Transmission Date: 20080405
  Serious: Yes (Death)
  Sender: FDA-Public Use
  Company Number: 163-21880-07011311

PATIENT
  Age: 59 Year
  Sex: Female

DRUGS (4)
  1. REVLIMID [Suspect]
     Indication: MULTIPLE MYELOMA
     Dosage: 10-20MG, DAILY, ORAL ; 15 MG, 1 IN 1 D, ORAL
     Route: 048
     Dates: start: 20060808, end: 20060101
  2. REVLIMID [Suspect]
     Indication: MYELODYSPLASTIC SYNDROME
     Dosage: 10-20MG, DAILY, ORAL ; 15 MG, 1 IN 1 D, ORAL
     Route: 048
     Dates: start: 20060808, end: 20060101
  3. REVLIMID [Suspect]
     Indication: MULTIPLE MYELOMA
     Dosage: 10-20MG, DAILY, ORAL ; 15 MG, 1 IN 1 D, ORAL
     Route: 048
     Dates: start: 20060224, end: 20060801
  4. REVLIMID [Suspect]
     Indication: MYELODYSPLASTIC SYNDROME
     Dosage: 10-20MG, DAILY, ORAL ; 15 MG, 1 IN 1 D, ORAL
     Route: 048
     Dates: start: 20060224, end: 20060801

REACTIONS (2)
  - DISEASE PROGRESSION [None]
  - SEPSIS [None]
